FAERS Safety Report 13417112 (Version 1)
Quarter: 2017Q2

REPORT INFORMATION
  Report Type: Spontaneous
  Country: US (occurrence: US)
  Receive Date: 20170407
  Receipt Date: 20170407
  Transmission Date: 20170830
  Serious: No
  Sender: FDA-Public Use
  Company Number: US-ASTRAZENECA-2017SE33333

PATIENT
  Age: 919 Month
  Sex: Male
  Weight: 99.8 kg

DRUGS (2)
  1. SYMBICORT [Suspect]
     Active Substance: BUDESONIDE\FORMOTEROL FUMARATE DIHYDRATE
     Indication: WHEEZING
     Dosage: 160/4.5 MCG 2 PUFFS TWICE DAILY
     Route: 055
     Dates: start: 20170316
  2. METFORMIN [Concomitant]
     Active Substance: METFORMIN HYDROCHLORIDE
     Indication: DIABETES MELLITUS
     Route: 048
     Dates: start: 2010

REACTIONS (5)
  - Off label use [Unknown]
  - Viral upper respiratory tract infection [Unknown]
  - Wheezing [Not Recovered/Not Resolved]
  - Product use in unapproved indication [Unknown]
  - Lung disorder [Unknown]

NARRATIVE: CASE EVENT DATE: 201703
